FAERS Safety Report 8540393-7 (Version None)
Quarter: 2012Q3

REPORT INFORMATION
  Report Type: 
  Country: None (occurrence: None)
  Receive Date: 20120726
  Receipt Date: 20110607
  Transmission Date: 20120928
  Serious: No
  Sender: FDA-Public Use
  Company Number: US-ASTRAZENECA-2011SE17963

PATIENT
  Age: 78 Year
  Sex: Female
  Weight: 57.2 kg

DRUGS (20)
  1. ALPRAZOLAM [Concomitant]
     Indication: ANXIETY
  2. ALPRAZOLAM [Concomitant]
     Dosage: 0.5 MG BID,PRN
  3. TYLENOL [Concomitant]
     Route: 048
  4. FESTIQUE [Concomitant]
     Indication: RENAL DISORDER
  5. VENTOLIN HFA [Concomitant]
     Dosage: 2 PUFFS EVERY 4 HOURS IF NEEDED
     Route: 055
     Dates: start: 20090804
  6. SEROQUEL [Suspect]
     Indication: DEPRESSION
     Route: 048
     Dates: start: 20090101
  7. SEROQUEL [Suspect]
     Route: 048
  8. PRISTIQ [Concomitant]
     Indication: DEPRESSION
     Route: 048
     Dates: start: 20100818
  9. ASPIRIN [Concomitant]
     Route: 048
  10. VESICARE [Concomitant]
     Route: 048
     Dates: start: 20100621
  11. ARICEPT [Concomitant]
     Indication: DEMENTIA
     Route: 048
     Dates: start: 20100722
  12. SEROQUEL [Suspect]
     Dosage: 25 MG THREE TIMES A WEEK.
     Route: 048
  13. COMBIVENT [Concomitant]
     Dosage: 18-103 MCG/ACT 1-2 PUFFS EVERY 4-6 HOURS AS NEEDED
     Route: 055
     Dates: start: 20110124
  14. SEROQUEL [Suspect]
     Indication: ANXIETY
     Route: 048
     Dates: start: 20090101
  15. SEROQUEL [Suspect]
     Route: 048
  16. MEGACE ES [Concomitant]
     Dosage: 625MG/5ML
     Route: 048
  17. SEROQUEL [Suspect]
     Dosage: 25 MG THREE TIMES A WEEK.
     Route: 048
  18. PLAVIX [Concomitant]
     Indication: ANXIETY
     Route: 048
  19. FERROUS SULFATE TAB [Concomitant]
     Route: 048
  20. MECLIZINE HCL [Concomitant]
     Dosage: 1 TABLET THREE TIMES DAILY AS NEEDED
     Route: 048

REACTIONS (2)
  - EMPHYSEMA [None]
  - DYSKINESIA [None]
